FAERS Safety Report 17110644 (Version 1)
Quarter: 2019Q4

REPORT INFORMATION
  Report Type: Spontaneous
  Country: US (occurrence: US)
  Receive Date: 20191204
  Receipt Date: 20191204
  Transmission Date: 20200122
  Serious: No
  Sender: FDA-Public Use
  Company Number: NVSC2019US026691

PATIENT
  Age: 48 Year
  Sex: Female

DRUGS (14)
  1. OMALIZUMAB. [Suspect]
     Active Substance: OMALIZUMAB
     Dosage: 150 MG (1.2 ML)
     Route: 065
     Dates: start: 20160609
  2. OMALIZUMAB. [Suspect]
     Active Substance: OMALIZUMAB
     Dosage: 150 MG (1.2 ML)
     Route: 065
     Dates: start: 20151105
  3. OMALIZUMAB. [Suspect]
     Active Substance: OMALIZUMAB
     Dosage: 150 MG (1.2 ML)
     Route: 065
     Dates: start: 20151129
  4. OMALIZUMAB. [Suspect]
     Active Substance: OMALIZUMAB
     Dosage: 150 MG (1.2 ML)
     Route: 065
     Dates: start: 20160107
  5. OMALIZUMAB. [Suspect]
     Active Substance: OMALIZUMAB
     Dosage: 150 MG (1.2 ML)
     Route: 065
     Dates: start: 20160211
  6. OMALIZUMAB. [Suspect]
     Active Substance: OMALIZUMAB
     Dosage: 150 MG (1.2 ML)
     Route: 065
     Dates: start: 20160310
  7. OMALIZUMAB. [Suspect]
     Active Substance: OMALIZUMAB
     Dosage: 150 MG (1.2 ML)
     Route: 065
     Dates: start: 20151210
  8. OMALIZUMAB. [Suspect]
     Active Substance: OMALIZUMAB
     Dosage: 150 MG (1.2 ML)
     Route: 065
     Dates: start: 20190512
  9. OMALIZUMAB. [Suspect]
     Active Substance: OMALIZUMAB
     Indication: CHRONIC SINUSITIS
     Dosage: 150 MG, Q4W
     Route: 058
     Dates: start: 201509, end: 201609
  10. OMALIZUMAB. [Suspect]
     Active Substance: OMALIZUMAB
     Dosage: 150 MG (1.2 ML)
     Route: 065
     Dates: start: 20160407
  11. OMALIZUMAB. [Suspect]
     Active Substance: OMALIZUMAB
     Dosage: 150 MG (1.2 ML)
     Route: 065
     Dates: start: 20160802
  12. OMALIZUMAB. [Suspect]
     Active Substance: OMALIZUMAB
     Dosage: 150 MG (1.2 ML)
     Route: 065
     Dates: start: 20160928
  13. PREDNISONE. [Suspect]
     Active Substance: PREDNISONE
     Indication: PRODUCT USED FOR UNKNOWN INDICATION
     Route: 065
  14. OMALIZUMAB. [Suspect]
     Active Substance: OMALIZUMAB
     Dosage: 150 MG (1.2 ML)
     Route: 065
     Dates: start: 20160707

REACTIONS (1)
  - Drug ineffective for unapproved indication [Unknown]
